FAERS Safety Report 10099939 (Version 2)
Quarter: 2014Q2

REPORT INFORMATION
  Report Type: Spontaneous
  Country: US (occurrence: US)
  Receive Date: 20140423
  Receipt Date: 20140423
  Transmission Date: 20141212
  Serious: No
  Sender: FDA-Public Use
  Company Number: US-GILEAD-2013-0074045

PATIENT
  Sex: Female

DRUGS (3)
  1. LETAIRIS [Suspect]
     Indication: PULMONARY ARTERIAL HYPERTENSION
     Dosage: 10 MG, QD
     Dates: start: 20091030
  2. LETAIRIS [Suspect]
     Dosage: 10 MG, QD
  3. REVATIO [Concomitant]

REACTIONS (5)
  - Fall [Unknown]
  - Pain in extremity [Unknown]
  - Upper limb fracture [Unknown]
  - Feeling hot [Unknown]
  - Dyspnoea exertional [Unknown]
